FAERS Safety Report 12297088 (Version 1)
Quarter: 2016Q2

REPORT INFORMATION
  Report Type: Spontaneous
  Country: US (occurrence: US)
  Receive Date: 20160422
  Receipt Date: 20160422
  Transmission Date: 20160815
  Serious: No
  Sender: FDA-Public Use
  Company Number: US-GLAXOSMITHKLINE-US2016055863

PATIENT
  Age: 56 Year
  Sex: Female

DRUGS (17)
  1. DULERA [Concomitant]
     Active Substance: FORMOTEROL FUMARATE DIHYDRATE\MOMETASONE FUROATE
  2. FUROSEMIDE. [Concomitant]
     Active Substance: FUROSEMIDE
  3. PULMICORT TURBUHALER [Concomitant]
     Active Substance: BUDESONIDE
  4. IRBESARTAN. [Concomitant]
     Active Substance: IRBESARTAN
  5. COUMADIN [Concomitant]
     Active Substance: WARFARIN SODIUM
  6. THEOPHYLLINE [Concomitant]
     Active Substance: THEOPHYLLINE ANHYDROUS
  7. COENZYME Q 10 [Concomitant]
  8. SPIRONOLACTONE. [Concomitant]
     Active Substance: SPIRONOLACTONE
  9. LANSOPRAZOLE. [Concomitant]
     Active Substance: LANSOPRAZOLE
  10. METFORMIN [Concomitant]
     Active Substance: METFORMIN HYDROCHLORIDE
  11. PREDNISONE. [Concomitant]
     Active Substance: PREDNISONE
  12. VITAMIN D3 [Concomitant]
     Active Substance: CHOLECALCIFEROL
  13. METOPROLOL. [Concomitant]
     Active Substance: METOPROLOL
  14. POTASSIUM [Concomitant]
     Active Substance: POTASSIUM
  15. TANZEUM [Suspect]
     Active Substance: ALBIGLUTIDE
     Indication: DIABETES MELLITUS
     Dosage: 30 MG, WE
     Dates: start: 201601
  16. PROAIR HFA [Concomitant]
     Active Substance: ALBUTEROL SULFATE
  17. SINGULAIR [Concomitant]
     Active Substance: MONTELUKAST SODIUM

REACTIONS (1)
  - Coagulopathy [Not Recovered/Not Resolved]

NARRATIVE: CASE EVENT DATE: 201601
